FAERS Safety Report 10085649 (Version 1)
Quarter: 2014Q2

REPORT INFORMATION
  Report Type: Spontaneous
  Country: US (occurrence: None)
  Receive Date: 20140416
  Receipt Date: 20140416
  Transmission Date: 20141212
  Serious: Yes (Other)
  Sender: FDA-Public Use
  Company Number: AUR-APL-2014-04596

PATIENT
  Sex: 0

DRUGS (3)
  1. METFORMIN (METFORMIN) [Suspect]
     Indication: DIABETES MELLITUS
  2. FUROSEMIDE (FUROSEMIDE) [Concomitant]
  3. METOPROLOL (METOPROLOL) [Concomitant]

REACTIONS (1)
  - Positron emission tomogram abnormal [None]
